FAERS Safety Report 12241638 (Version 1)
Quarter: 2016Q2

REPORT INFORMATION
  Report Type: Spontaneous
  Country: US (occurrence: US)
  Receive Date: 20160406
  Receipt Date: 20160406
  Transmission Date: 20160815
  Serious: No
  Sender: FDA-Public Use
  Company Number: US-SUN PHARMACEUTICAL INDUSTRIES LTD-2015SUN01461

PATIENT

DRUGS (1)
  1. LEUPROLIDE ACETATE INJ 1MG/0.2ML [Suspect]
     Active Substance: LEUPROLIDE ACETATE
     Indication: INFERTILITY
     Dosage: 0.1MG/2ML UNK, DAILY
     Dates: start: 20150530

REACTIONS (4)
  - Blood oestrogen increased [Recovered/Resolved]
  - Diarrhoea [Recovered/Resolved]
  - Drug ineffective for unapproved indication [Recovered/Resolved]
  - Off label use [Recovered/Resolved]

NARRATIVE: CASE EVENT DATE: 20150610
